FAERS Safety Report 4975186-0 (Version None)
Quarter: 2006Q2

REPORT INFORMATION
  Report Type: 
  Country: None (occurrence: None)
  Receive Date: 20060417
  Receipt Date: 20060417
  Transmission Date: 20061013
  Serious: Yes (Life-Threatening, Hospitalization)
  Sender: FDA-Public Use
  Company Number: None

PATIENT
  Age: 60 Year
  Sex: Female
  Weight: 81.6475 kg

DRUGS (4)
  1. COUMADIN [Suspect]
     Indication: ATRIAL FIBRILLATION
  2. COUMADIN [Suspect]
     Indication: CARDIAC FAILURE CONGESTIVE
  3. COUMADIN [Suspect]
     Indication: CARDIAC VALVE DISEASE
  4. COUMADIN [Suspect]
     Indication: CARDIOMYOPATHY

REACTIONS (2)
  - CONTUSION [None]
  - INTERNATIONAL NORMALISED RATIO INCREASED [None]
